FAERS Safety Report 17872530 (Version 3)
Quarter: 2020Q3

REPORT INFORMATION
  Report Type: Spontaneous
  Country: AU (occurrence: AU)
  Receive Date: 20200608
  Receipt Date: 20200813
  Transmission Date: 20201103
  Serious: Yes (Other)
  Sender: FDA-Public Use
  Company Number: AU-JNJFOC-20200536599

PATIENT
  Sex: Male

DRUGS (1)
  1. REMICADE [Suspect]
     Active Substance: INFLIXIMAB
     Indication: PRODUCT USED FOR UNKNOWN INDICATION
     Route: 042

REACTIONS (6)
  - Hyperhidrosis [Unknown]
  - Arthralgia [Unknown]
  - Oropharyngeal pain [Unknown]
  - Infusion related reaction [Unknown]
  - Feeling hot [Unknown]
  - Hypertension [Unknown]

NARRATIVE: CASE EVENT DATE: 20191029
